FAERS Safety Report 6460215-8 (Version None)
Quarter: 2009Q4

REPORT INFORMATION
  Report Type: 
  Country: None (occurrence: None)
  Receive Date: 20091130
  Receipt Date: 20091120
  Transmission Date: 20100525
  Serious: Yes (Hospitalization)
  Sender: FDA-Public Use
  Company Number: DE-RANBAXY-2009RR-22642

PATIENT
  Age: 87 Year
  Sex: Female

DRUGS (7)
  1. CIPROFLOXACIN [Suspect]
     Indication: URINARY TRACT INFECTION
     Dosage: 250 MG, BID
     Route: 048
     Dates: start: 20090115, end: 20090122
  2. CLONT [Suspect]
     Indication: CLOSTRIDIUM DIFFICILE COLITIS
     Dosage: 500 MG, TID
     Route: 048
     Dates: start: 20090120, end: 20090201
  3. VAGIMID [Suspect]
     Dosage: 500 MG, TID
  4. ACTRAPID HUMAN [Concomitant]
     Indication: TYPE 2 DIABETES MELLITUS
     Dosage: UNK
     Route: 058
  5. BISOHEXAL [Concomitant]
     Indication: TACHYARRHYTHMIA
     Dosage: 5 MG, BID
     Route: 048
  6. DUROGESIC 12.5 UG/H [Concomitant]
     Indication: PAIN
     Route: 062
  7. NOVODIGAL [Concomitant]
     Indication: TACHYARRHYTHMIA
     Dosage: 0.2 MG, QD
     Route: 048

REACTIONS (2)
  - CLOSTRIDIUM DIFFICILE COLITIS [None]
  - DRUG INTERACTION [None]
